FAERS Safety Report 6588286-9 (Version None)
Quarter: 2010Q1

REPORT INFORMATION
  Report Type: 
  Country: None (occurrence: None)
  Receive Date: 20100218
  Receipt Date: 20100205
  Transmission Date: 20100710
  Serious: Yes (Hospitalization, Other)
  Sender: FDA-Public Use
  Company Number: US-BAYER-200917851BCC

PATIENT
  Age: 57 Year
  Sex: Male
  Weight: 105 kg

DRUGS (7)
  1. BRONKAID [Suspect]
     Indication: DYSPNOEA
     Dosage: TOTAL DAILY DOSE: 2 DF  UNIT DOSE: 1 DF
     Route: 048
     Dates: start: 20091222
  2. PROTONIX [Concomitant]
     Route: 065
  3. METFORMIN HYDROCHLORIDE [Concomitant]
     Route: 065
  4. PREDNISONE [Concomitant]
     Route: 065
  5. FLOVENT [Concomitant]
     Route: 065
  6. AZMACORT [Concomitant]
     Route: 065
  7. OXYGEN [Concomitant]
     Route: 065

REACTIONS (2)
  - DYSPNOEA [None]
  - HYPERSENSITIVITY [None]
